FAERS Safety Report 8582544 (Version 10)
Quarter: 2015Q3

REPORT INFORMATION
  Report Type: Spontaneous
  Country: US (occurrence: US)
  Receive Date: 20120529
  Receipt Date: 20150901
  Transmission Date: 20151125
  Serious: Yes (Hospitalization)
  Sender: FDA-Public Use
  Company Number: US-PFIZER INC-2012127100

PATIENT
  Age: 82 Year
  Sex: Male
  Weight: 79.37 kg

DRUGS (15)
  1. LYRICA [Concomitant]
     Active Substance: PREGABALIN
     Indication: DIABETIC NEUROPATHY
     Dosage: UNK
     Dates: start: 20050115
  2. METOPROLOL TARTRATE. [Concomitant]
     Active Substance: METOPROLOL TARTRATE
     Dosage: UNK
  3. GEMFIBROZIL. [Concomitant]
     Active Substance: GEMFIBROZIL
     Dosage: UNK
     Dates: start: 20140115
  4. AMLODIPINE [Concomitant]
     Active Substance: AMLODIPINE BESYLATE
     Dosage: 2.5 MG, 1X/DAY (QAM)
     Dates: start: 201205
  5. LISINOPRIL. [Concomitant]
     Active Substance: LISINOPRIL
     Dosage: UNK
     Dates: start: 20120115
  6. SUTENT [Suspect]
     Active Substance: SUNITINIB MALATE
     Dosage: 50 MG, CYCLIC (DAILY 2 WEEKS AND OFF 1 WEEK)
     Route: 048
     Dates: start: 2012
  7. GEMFIBROZIL. [Concomitant]
     Active Substance: GEMFIBROZIL
     Dosage: UNK
     Dates: start: 201406
  8. SUTENT [Suspect]
     Active Substance: SUNITINIB MALATE
     Dosage: 25 MG, CYCLIC (14 DAYS ON AND 7 DAYS OFF)(2WKS ON + 1 WKS OFF)
     Route: 048
     Dates: start: 201205
  9. SUTENT [Suspect]
     Active Substance: SUNITINIB MALATE
     Dosage: 50 MG, UNK
     Route: 048
     Dates: start: 20140204
  10. LANTUS [Concomitant]
     Active Substance: INSULIN GLARGINE
     Indication: TYPE 2 DIABETES MELLITUS
     Dosage: 20 IU, DAILY IN THE MORNING
     Dates: start: 200706
  11. LANTUS [Concomitant]
     Active Substance: INSULIN GLARGINE
     Dosage: 20 IU, DAILY IN THE MORNING
     Dates: start: 20120115
  12. SUTENT [Suspect]
     Active Substance: SUNITINIB MALATE
     Indication: METASTATIC RENAL CELL CARCINOMA
     Dosage: 50 MG, CYCLIC (DAILY 4 WKS ON, 2 WKS OFF)
     Route: 048
     Dates: start: 20120517
  13. LISINOPRIL. [Concomitant]
     Active Substance: LISINOPRIL
     Dosage: UNK
     Dates: start: 200206
  14. LYRICA [Concomitant]
     Active Substance: PREGABALIN
     Indication: NEUROPATHY PERIPHERAL
     Dosage: 600 MG, 1X/DAY EVERY EVENING
     Dates: start: 200206
  15. GLIPIZIDE. [Concomitant]
     Active Substance: GLIPIZIDE
     Dosage: UNK

REACTIONS (7)
  - Palmar-plantar erythrodysaesthesia syndrome [Recovering/Resolving]
  - Constipation [Recovered/Resolved]
  - Stomatitis [Unknown]
  - Fatigue [Unknown]
  - Joint stiffness [Recovered/Resolved]
  - Diarrhoea [Recovered/Resolved]
  - Glossodynia [Not Recovered/Not Resolved]

NARRATIVE: CASE EVENT DATE: 20120522
